FAERS Safety Report 17588106 (Version 3)
Quarter: 2020Q2

REPORT INFORMATION
  Report Type: Spontaneous
  Country: US (occurrence: US)
  Receive Date: 20200326
  Receipt Date: 20200402
  Transmission Date: 20200713
  Serious: Yes (Hospitalization, Other)
  Sender: FDA-Public Use
  Company Number: US-PFIZER INC-2020124640

PATIENT
  Age: 56 Year
  Sex: Female
  Weight: 104.3 kg

DRUGS (1)
  1. FLECTOR [Suspect]
     Active Substance: DICLOFENAC EPOLAMINE
     Indication: ANALGESIC THERAPY
     Dosage: UNK, 1X/DAY (APPLY 2 PATCHES PER DAY)
     Route: 061

REACTIONS (4)
  - Pulmonary thrombosis [Unknown]
  - Condition aggravated [Not Recovered/Not Resolved]
  - Pain in extremity [Unknown]
  - Blister [Not Recovered/Not Resolved]

NARRATIVE: CASE EVENT DATE: 202001
